FAERS Safety Report 7786277-3 (Version None)
Quarter: 2011Q3

REPORT INFORMATION
  Report Type: 
  Country: None (occurrence: None)
  Receive Date: 20110929
  Receipt Date: 20110916
  Transmission Date: 20111222
  Serious: Yes (Other)
  Sender: FDA-Public Use
  Company Number: PHFR2011IE03973

PATIENT
  Sex: Male

DRUGS (4)
  1. AMISULPRIDE [Suspect]
     Indication: PSYCHOTIC DISORDER
     Dosage: 800 MG/DAY
     Route: 048
  2. VALPROATE SODIUM [Concomitant]
     Indication: CONVULSION PROPHYLAXIS
     Dosage: 1200 MG/DAY
     Route: 048
  3. CLOZAPINE [Suspect]
     Indication: PSYCHOTIC DISORDER
     Dosage: 150 MG/DAY
     Route: 048
     Dates: start: 20050809, end: 20110619
  4. VALPROATE SODIUM [Concomitant]
     Indication: AFFECTIVE DISORDER

REACTIONS (6)
  - LEUKOPENIA [None]
  - INFLUENZA LIKE ILLNESS [None]
  - NEUTROPHIL COUNT DECREASED [None]
  - PYREXIA [None]
  - NEUTROPENIA [None]
  - WHITE BLOOD CELL COUNT DECREASED [None]
